FAERS Safety Report 5492205-6 (Version None)
Quarter: 2007Q4

REPORT INFORMATION
  Report Type: 
  Country: None (occurrence: None)
  Receive Date: 20071022
  Receipt Date: 20071012
  Transmission Date: 20080405
  Serious: Yes (Death, Other)
  Sender: FDA-Public Use
  Company Number: JP-JNJFOC-20071001295

PATIENT
  Age: 74 Year
  Sex: Male

DRUGS (2)
  1. LEVOFLOXACIN [Suspect]
     Indication: INFLAMMATION
     Route: 048
  2. CLARITHROMYCIN [Concomitant]
     Route: 065

REACTIONS (2)
  - CONVULSION [None]
  - DEATH [None]
